FAERS Safety Report 8532663-3 (Version None)
Quarter: 2012Q3

REPORT INFORMATION
  Report Type: 
  Country: None (occurrence: None)
  Receive Date: 20120724
  Receipt Date: 20120711
  Transmission Date: 20120928
  Serious: No
  Sender: FDA-Public Use
  Company Number: JP-JNJFOC-20120708035

PATIENT

DRUGS (1)
  1. FENTANYL-100 [Suspect]
     Indication: PAIN
     Route: 062

REACTIONS (1)
  - INAPPROPRIATE SCHEDULE OF DRUG ADMINISTRATION [None]
